FAERS Safety Report 6263154-0 (Version None)
Quarter: 2009Q3

REPORT INFORMATION
  Report Type: 
  Country: None (occurrence: None)
  Receive Date: 20090708
  Receipt Date: 20090708
  Transmission Date: 20100115
  Serious: Yes (Other)
  Sender: FDA-Public Use
  Company Number: None

PATIENT
  Age: 70 Year
  Sex: Female
  Weight: 56.246 kg

DRUGS (2)
  1. AMOXICILLIN [Suspect]
     Indication: GINGIVAL INFECTION
     Dosage: 500 MG CAP SARD 1 X 3 DAY ORAL
     Route: 048
     Dates: start: 20090506, end: 20090516
  2. METRONIDAZOLE [Suspect]
     Dosage: 250 MG TAB TEVA
     Dates: start: 20090506, end: 20090516

REACTIONS (2)
  - ATRIAL FIBRILLATION [None]
  - DIARRHOEA [None]
